FAERS Safety Report 8205178-X (Version None)
Quarter: 2012Q1

REPORT INFORMATION
  Report Type: 
  Country: None (occurrence: None)
  Receive Date: 20120313
  Receipt Date: 20120206
  Transmission Date: 20120608
  Serious: Yes (Hospitalization)
  Sender: FDA-Public Use
  Company Number: US-ROCHE-1026515

PATIENT
  Sex: Female

DRUGS (1)
  1. ZELBORAF [Suspect]
     Indication: PRODUCT USED FOR UNKNOWN INDICATION
     Dosage: TEMPORARILY DISCONTINUED
     Route: 065

REACTIONS (9)
  - RASH [None]
  - HAEMATEMESIS [None]
  - FATIGUE [None]
  - VOMITING [None]
  - HEADACHE [None]
  - MYALGIA [None]
  - ARTHRALGIA [None]
  - LIVER FUNCTION TEST ABNORMAL [None]
  - DEHYDRATION [None]
